FAERS Safety Report 7271968-3 (Version None)
Quarter: 2010Q4

REPORT INFORMATION
  Report Type: 
  Country: None (occurrence: None)
  Receive Date: 20101130
  Receipt Date: 20091118
  Transmission Date: 20110411
  Serious: Yes (Hospitalization)
  Sender: FDA-Public Use
  Company Number: 2009SP037373

PATIENT
  Age: 24 Year
  Sex: Female
  Weight: 72.5755 kg

DRUGS (2)
  1. NUVARING [Suspect]
     Indication: PRODUCT USED FOR UNKNOWN INDICATION
     Dosage: VAG
     Route: 067
     Dates: start: 20070716, end: 20071114
  2. GARDASIL [Concomitant]

REACTIONS (4)
  - CERVICAL DYSPLASIA [None]
  - PAPILLOMA VIRAL INFECTION [None]
  - PULMONARY EMBOLISM [None]
  - VAGINAL DISCHARGE [None]
